FAERS Safety Report 11716558 (Version 2)
Quarter: 2015Q4

REPORT INFORMATION
  Report Type: Spontaneous
  Country: US (occurrence: US)
  Receive Date: 20151104
  Receipt Date: 20151110
  Transmission Date: 20160304
  Serious: No
  Sender: FDA-Public Use
  Company Number: US-ELI_LILLY_AND_COMPANY-US201104002755

PATIENT
  Sex: Female

DRUGS (13)
  1. FORTEO [Suspect]
     Active Substance: TERIPARATIDE
     Dosage: 20 UG, QD
  2. DETROL [Concomitant]
     Active Substance: TOLTERODINE TARTRATE
  3. TRAMADOL. [Concomitant]
     Active Substance: TRAMADOL
  4. FORTEO [Suspect]
     Active Substance: TERIPARATIDE
     Indication: OSTEOPOROSIS
     Dosage: 20 UG, QD
     Route: 065
     Dates: start: 20110206
  5. FORTEO [Suspect]
     Active Substance: TERIPARATIDE
     Dosage: 20 UG, QD
     Route: 065
  6. GABAPENTIN. [Concomitant]
     Active Substance: GABAPENTIN
  7. CALCIUM PLUS D3 [Concomitant]
  8. FLAXSEED [Concomitant]
     Active Substance: FLAX SEED
  9. PRAVASTATIN [Concomitant]
     Active Substance: PRAVASTATIN\PRAVASTATIN SODIUM
  10. CORTICOSTEROIDS [Concomitant]
     Active Substance: CORTICOSTEROID NOS
  11. FUROSEMIDE. [Concomitant]
     Active Substance: FUROSEMIDE
  12. CENTRUM SILVER [Concomitant]
     Active Substance: MINERALS\VITAMINS
  13. OMEPRAZOLE. [Concomitant]
     Active Substance: OMEPRAZOLE

REACTIONS (10)
  - Exostosis [Unknown]
  - Paraparesis [Unknown]
  - Gait disturbance [Recovering/Resolving]
  - Injection site pain [Not Recovered/Not Resolved]
  - Injection site bruising [Not Recovered/Not Resolved]
  - Spinal cord compression [Unknown]
  - Pain in extremity [Not Recovered/Not Resolved]
  - Sciatica [Unknown]
  - Back pain [Unknown]
  - Adverse event [Unknown]
